FAERS Safety Report 7204760-6 (Version None)
Quarter: 2010Q4

REPORT INFORMATION
  Report Type: 
  Country: None (occurrence: None)
  Receive Date: 20101230
  Receipt Date: 20101122
  Transmission Date: 20110411
  Serious: No
  Sender: FDA-Public Use
  Company Number: US-PFIZER INC-2010156106

PATIENT
  Age: 42 Year
  Sex: Female

DRUGS (6)
  1. LIPITOR [Suspect]
  2. ATACAND [Suspect]
  3. FLUOXETINE [Suspect]
  4. HYDROCHLOROTHIAZIDE [Suspect]
  5. VENTOLIN [Suspect]
  6. VERAMYST [Suspect]

REACTIONS (2)
  - ARTHRALGIA [None]
  - MYALGIA [None]
